FAERS Safety Report 10463878 (Version 1)
Quarter: 2014Q3

REPORT INFORMATION
  Report Type: Spontaneous
  Country: DE (occurrence: DE)
  Receive Date: 20140919
  Receipt Date: 20140919
  Transmission Date: 20150326
  Serious: Yes (Congenital Anomaly)
  Sender: FDA-Public Use
  Company Number: DE-RANBAXY-2014RR-85498

PATIENT
  Sex: Female

DRUGS (4)
  1. CETIRIZINE [Suspect]
     Active Substance: CETIRIZINE HYDROCHLORIDE
     Indication: HYPERSENSITIVITY
     Dosage: 10 MG, DAILY
     Route: 064
     Dates: start: 20130527, end: 20140313
  2. BUDECORT [Suspect]
     Active Substance: BUDESONIDE
     Indication: ALLERGIC COUGH
     Dosage: UNK
     Route: 064
     Dates: start: 20130527, end: 20140313
  3. AMOXICILLIN 1000 MG [Concomitant]
     Indication: PNEUMONIA
     Dosage: 1000 MG, TID
     Route: 064
  4. MONTELUKAST [Suspect]
     Active Substance: MONTELUKAST SODIUM
     Indication: ALLERGIC COUGH
     Dosage: 10 MG, DAILY
     Route: 064
     Dates: start: 20130527, end: 20130621

REACTIONS (2)
  - Pulmonary artery stenosis [Not Recovered/Not Resolved]
  - Atrial septal defect [Not Recovered/Not Resolved]
